FAERS Safety Report 12756957 (Version 2)
Quarter: 2016Q4

REPORT INFORMATION
  Report Type: Report from Study
  Country: CA (occurrence: CA)
  Receive Date: 20160917
  Receipt Date: 20161107
  Transmission Date: 20170207
  Serious: Yes (Other)
  Sender: FDA-Public Use
  Company Number: PHHY2016CA095300

PATIENT
  Age: 5 Year
  Sex: Male

DRUGS (6)
  1. ILARIS [Suspect]
     Active Substance: CANAKINUMAB
     Dosage: 175 MG, EVERY 4 WEEKS
     Route: 058
  2. ILARIS [Suspect]
     Active Substance: CANAKINUMAB
     Indication: JUVENILE IDIOPATHIC ARTHRITIS
     Dosage: 115 MG, EVERY 4 WEEKS
     Route: 058
     Dates: start: 20160610
  3. CORTISONE [Suspect]
     Active Substance: CORTISONE\HYDROCORTISONE
     Indication: PRODUCT USED FOR UNKNOWN INDICATION
     Route: 065
  4. ILARIS [Suspect]
     Active Substance: CANAKINUMAB
     Dosage: UNK
     Route: 058
     Dates: start: 20160809
  5. ILARIS [Suspect]
     Active Substance: CANAKINUMAB
     Dosage: UNK
     Route: 058
     Dates: start: 20160707
  6. ILARIS [Suspect]
     Active Substance: CANAKINUMAB
     Dosage: 4 MG/KG,
     Route: 058

REACTIONS (6)
  - Inflammation [Unknown]
  - Drug effect decreased [Unknown]
  - Malaise [Unknown]
  - Blood pressure decreased [Unknown]
  - Juvenile idiopathic arthritis [Unknown]
  - Pain [Unknown]

NARRATIVE: CASE EVENT DATE: 2016
